FAERS Safety Report 16544308 (Version 1)
Quarter: 2019Q3

REPORT INFORMATION
  Report Type: Spontaneous
  Country: US (occurrence: US)
  Receive Date: 20190708
  Receipt Date: 20190708
  Transmission Date: 20191004
  Serious: Yes (Other)
  Sender: FDA-Public Use
  Company Number: None

PATIENT
  Age: 79 Year
  Sex: Male
  Weight: 74.25 kg

DRUGS (8)
  1. CPAP [Concomitant]
     Active Substance: DEVICE
  2. HYDROCHLOROTHIAZIDE. [Concomitant]
     Active Substance: HYDROCHLOROTHIAZIDE
  3. PEPTO-BISMOL [Suspect]
     Active Substance: BISMUTH SUBSALICYLATE
     Indication: DIARRHOEA
     Dosage: ?          QUANTITY:2 TABLET(S);?
     Route: 048
  4. CALCIUM CITRATE PLUS D3 [Concomitant]
  5. PEPTO-BISMOL [Suspect]
     Active Substance: BISMUTH SUBSALICYLATE
     Indication: COLITIS MICROSCOPIC
     Dosage: ?          QUANTITY:2 TABLET(S);?
     Route: 048
  6. ULTIMATE FLORA PROBIOTIC [Concomitant]
     Active Substance: PROBIOTICS NOS
  7. POTASSIUM GLUCONATE [Concomitant]
     Active Substance: POTASSIUM GLUCONATE
  8. AREDS 2 [Concomitant]
     Active Substance: MINERALS\VITAMINS

REACTIONS (6)
  - Parosmia [None]
  - Cyanopsia [None]
  - Middle insomnia [None]
  - Hot flush [None]
  - Taste disorder [None]
  - Visual impairment [None]

NARRATIVE: CASE EVENT DATE: 20190627
